FAERS Safety Report 7603336-6 (Version None)
Quarter: 2011Q3

REPORT INFORMATION
  Report Type: 
  Country: None (occurrence: None)
  Receive Date: 20110712
  Receipt Date: 20110704
  Transmission Date: 20111222
  Serious: Yes (Other)
  Sender: FDA-Public Use
  Company Number: KR-BAXTER-2011BH003072

PATIENT
  Age: 37 Year
  Sex: Female
  Weight: 52 kg

DRUGS (6)
  1. ROCURONIUM BROMIDE [Suspect]
     Indication: GENERAL ANAESTHESIA
     Route: 042
  2. OXYGEN [Suspect]
     Indication: MEDICATION DILUTION
  3. NITROUS OXIDE [Suspect]
     Indication: GENERAL ANAESTHESIA
  4. LABETALOL HCL [Suspect]
     Indication: HYPERTENSION
     Route: 042
  5. THIOPENTAL SODIUM [Suspect]
     Indication: INDUCTION OF ANAESTHESIA
     Route: 042
  6. SEVOFLURANE [Suspect]
     Indication: GENERAL ANAESTHESIA
     Route: 065

REACTIONS (10)
  - LEFT VENTRICULAR FAILURE [None]
  - MATERNAL EXPOSURE DURING PREGNANCY [None]
  - PULMONARY OEDEMA [None]
  - MITRAL VALVE INCOMPETENCE [None]
  - PULMONARY ARTERIAL HYPERTENSION [None]
  - PERIPARTUM CARDIOMYOPATHY [None]
  - WOUND SECRETION [None]
  - CAESAREAN SECTION [None]
  - TRICUSPID VALVE INCOMPETENCE [None]
  - PREMATURE DELIVERY [None]
